FAERS Safety Report 6673475-5 (Version None)
Quarter: 2010Q2

REPORT INFORMATION
  Report Type: 
  Country: None (occurrence: None)
  Receive Date: 20100408
  Receipt Date: 20100329
  Transmission Date: 20101027
  Serious: Yes (Hospitalization, Other)
  Sender: FDA-Public Use
  Company Number: US-BAXTER-2010BH007223

PATIENT
  Age: 47 Year
  Sex: Male

DRUGS (3)
  1. DIANEAL [Suspect]
     Indication: PERITONEAL DIALYSIS
     Route: 033
     Dates: start: 20090101, end: 20100312
  2. DIANEAL [Suspect]
     Indication: PERITONEAL DIALYSIS
     Route: 033
     Dates: start: 20100314, end: 20100301
  3. DIANEAL [Suspect]
     Route: 033
     Dates: start: 20100313, end: 20100313

REACTIONS (4)
  - DYSPNOEA [None]
  - FLUID OVERLOAD [None]
  - HEART VALVE INCOMPETENCE [None]
  - PROCEDURAL PAIN [None]
